FAERS Safety Report 12190163 (Version 1)
Quarter: 2016Q1

REPORT INFORMATION
  Report Type: Spontaneous
  Country: CN (occurrence: CN)
  Receive Date: 20160318
  Receipt Date: 20160318
  Transmission Date: 20160526
  Serious: Yes (Hospitalization)
  Sender: FDA-Public Use
  Company Number: CN-SUN PHARMACEUTICAL INDUSTRIES LTD-2016R1-113414

PATIENT
  Age: 30 Year
  Sex: Male

DRUGS (8)
  1. RIBAVIRIN. [Concomitant]
     Active Substance: RIBAVIRIN
     Indication: HERPES ZOSTER
     Dosage: 0.3 G, BID
     Route: 065
  2. DEXAMETHASONE. [Suspect]
     Active Substance: DEXAMETHASONE
     Indication: MENINGITIS VIRAL
     Dosage: 10 MG, DAILY
     Route: 065
  3. POLYMYXIN B. [Concomitant]
     Active Substance: POLYMYXIN B
     Indication: PRODUCT USED FOR UNKNOWN INDICATION
     Dosage: 1 G, TID
     Route: 065
  4. DEXAMETHASONE. [Suspect]
     Active Substance: DEXAMETHASONE
     Indication: MENINGITIS VIRAL
     Dosage: 20 MG, DAILY
     Route: 065
  5. MEZLOCILLIN SODIUM, SULBACTAM SODIUM [Concomitant]
     Indication: PRODUCT USED FOR UNKNOWN INDICATION
     Dosage: 3.75 G, BID
     Route: 042
  6. ACYCLOVIR. [Concomitant]
     Active Substance: ACYCLOVIR
     Indication: HERPES ZOSTER
     Dosage: Q4H
     Route: 065
  7. GANCICLOVIR. [Concomitant]
     Active Substance: GANCICLOVIR
     Indication: MENINGITIS VIRAL
     Dosage: 750 MG, DAILY
     Route: 042
  8. PREDNISONE ACETATE [Concomitant]
     Active Substance: PREDNISONE ACETATE
     Indication: MENINGITIS VIRAL
     Dosage: 40 MG, DAILY
     Route: 065

REACTIONS (1)
  - Tuberculosis [Recovered/Resolved]
